FAERS Safety Report 21676127 (Version 9)
Quarter: 2023Q4

REPORT INFORMATION
  Report Type: Report from Study
  Country: FR (occurrence: FR)
  Receive Date: 20221202
  Receipt Date: 20231230
  Transmission Date: 20240110
  Serious: Yes (Hospitalization)
  Sender: FDA-Public Use
  Company Number: FR-SA-SAC20221129001521

PATIENT
  Age: 64 Year
  Sex: Male
  Weight: 84 kg

DRUGS (6)
  1. ISATUXIMAB [Suspect]
     Active Substance: ISATUXIMAB
     Indication: Plasma cell myeloma
     Dosage: 780 MG, DAY 1, 8, 15
     Route: 042
     Dates: start: 20220928, end: 20220928
  2. ISATUXIMAB [Suspect]
     Active Substance: ISATUXIMAB
     Dosage: 920 MG (10 MG/KG), DI D15
     Route: 065
     Dates: start: 20230927, end: 20230927
  3. CARFILZOMIB [Suspect]
     Active Substance: CARFILZOMIB
     Indication: Plasma cell myeloma
     Dosage: 101 MG, DAY 1, 8, 15
     Route: 042
     Dates: start: 20220928, end: 20220928
  4. CARFILZOMIB [Suspect]
     Active Substance: CARFILZOMIB
     Dosage: 101 MG ON D1 D8 D15
     Route: 042
     Dates: start: 20230927, end: 20230927
  5. LENALIDOMIDE [Suspect]
     Active Substance: LENALIDOMIDE
     Indication: Plasma cell myeloma
     Dosage: 25 MG (D1-D21)
     Route: 048
     Dates: start: 20220928, end: 20220928
  6. DEXAMETHASONE [Suspect]
     Active Substance: DEXAMETHASONE
     Indication: Plasma cell myeloma
     Dosage: 20 MG DAY 1, 8, 15,22
     Route: 048
     Dates: start: 20220928, end: 20220928

REACTIONS (2)
  - Erysipelas [Recovered/Resolved]
  - Erysipelas [Recovered/Resolved]

NARRATIVE: CASE EVENT DATE: 20221127
